FAERS Safety Report 9966966 (Version 2)
Quarter: 2014Q1

REPORT INFORMATION
  Report Type: Spontaneous
  Country: JP (occurrence: JP)
  Receive Date: 20140305
  Receipt Date: 20140311
  Transmission Date: 20141002
  Serious: Yes (Other)
  Sender: FDA-Public Use
  Company Number: JP-RB-064248-14

PATIENT
  Sex: 0

DRUGS (2)
  1. LEPETAN INJECTION [Suspect]
     Indication: PROCEDURAL PAIN
     Dosage: STARTED AT 1 AMPOULE PER DAY
     Route: 042
     Dates: start: 20140220
  2. FENTANYL CITRATE [Concomitant]
     Indication: PRODUCT USED FOR UNKNOWN INDICATION
     Dosage: DOSING DETAILS UNKNOWN
     Route: 065

REACTIONS (2)
  - Hypercapnia [Unknown]
  - Respiratory depression [Unknown]
